FAERS Safety Report 7314415-5 (Version None)
Quarter: 2011Q1

REPORT INFORMATION
  Report Type: 
  Country: None (occurrence: None)
  Receive Date: 20110225
  Receipt Date: 20101013
  Transmission Date: 20110831
  Serious: No
  Sender: FDA-Public Use
  Company Number: US-MYLANLABS-2010S1014846

PATIENT
  Age: 29 Year
  Sex: Female
  Weight: 39.92 kg

DRUGS (2)
  1. MULTI-VITAMIN [Concomitant]
  2. AMNESTEEM [Suspect]
     Indication: ACNE
     Route: 048
     Dates: start: 20100606, end: 20100817

REACTIONS (5)
  - EYELID OEDEMA [None]
  - DRY EYE [None]
  - EYE INFECTION [None]
  - DRUG INTOLERANCE [None]
  - EYE PAIN [None]
